FAERS Safety Report 6148629-7 (Version None)
Quarter: 2009Q2

REPORT INFORMATION
  Report Type: 
  Country: None (occurrence: None)
  Receive Date: 20090408
  Receipt Date: 20090331
  Transmission Date: 20091009
  Serious: Yes (Other)
  Sender: FDA-Public Use
  Company Number: US-WATSON-2009-02216

PATIENT
  Age: 50 Year
  Sex: Female

DRUGS (2)
  1. BUTALBITAL/ASPIRIN/CAFFEINE/CODEINE PHOSPHATE 50/325/40/30 (WATSON) [Suspect]
     Indication: MIGRAINE
     Dosage: 1 CAPSULE, Q6HRS
     Route: 048
     Dates: start: 19890101
  2. ANTIDEPRESSANTS [Suspect]
     Indication: DEPRESSION
     Dosage: UNK
     Route: 048

REACTIONS (4)
  - BRAIN NEOPLASM [None]
  - MULTIPLE SCLEROSIS [None]
  - OPTIC NERVE DISORDER [None]
  - PITUITARY TUMOUR [None]
